FAERS Safety Report 9261826 (Version 1)
Quarter: 2013Q2

REPORT INFORMATION
  Report Type: Spontaneous
  Country: US (occurrence: US)
  Receive Date: 20130429
  Receipt Date: 20130429
  Transmission Date: 20140414
  Serious: Yes (Other)
  Sender: FDA-Public Use
  Company Number: CHPA2013US007111

PATIENT
  Age: 73 Year
  Sex: Female

DRUGS (3)
  1. MAALOX UNKNOWN [Suspect]
     Indication: GASTROOESOPHAGEAL REFLUX DISEASE
     Dosage: UNK, UNK
     Route: 048
  2. ACIPHEX [Suspect]
     Dosage: UNK, UNK
  3. GAVISCON PEPPERMINT [Concomitant]
     Indication: GASTROOESOPHAGEAL REFLUX DISEASE
     Dosage: UNK, UNK

REACTIONS (7)
  - Cerebrovascular accident [Unknown]
  - Myocardial infarction [Unknown]
  - Polyp [Unknown]
  - Vomiting [Unknown]
  - Nausea [Recovering/Resolving]
  - Therapeutic response unexpected [Recovering/Resolving]
  - Off label use [Recovering/Resolving]
